FAERS Safety Report 14454396 (Version 1)
Quarter: 2018Q1

REPORT INFORMATION
  Report Type: Spontaneous
  Country: US (occurrence: US)
  Receive Date: 20180128
  Receipt Date: 20180128
  Transmission Date: 20180509
  Serious: Yes (Other)
  Sender: FDA-Public Use
  Company Number: None

PATIENT
  Sex: Female
  Weight: 105.75 kg

DRUGS (13)
  1. HYDROXYZINE HCL 25 TAB [Suspect]
     Active Substance: HYDROXYZINE HYDROCHLORIDE
     Indication: INSOMNIA
     Dosage: ?          QUANTITY:2 TABLET(S);?
     Route: 048
     Dates: end: 20180113
  2. TUSSIN DM [Concomitant]
     Active Substance: DEXTROMETHORPHAN HYDROBROMIDE\GUAIFENESIN
  3. TAMIFLU [Concomitant]
     Active Substance: OSELTAMIVIR PHOSPHATE
  4. COLDS+FLU SEVERE [Concomitant]
  5. FLONASE [Concomitant]
     Active Substance: FLUTICASONE PROPIONATE
  6. HYDROXYZINE HCL 25 TAB [Suspect]
     Active Substance: HYDROXYZINE HYDROCHLORIDE
     Indication: ANXIETY
     Dosage: ?          QUANTITY:2 TABLET(S);?
     Route: 048
     Dates: end: 20180113
  7. FIBER + VITAMIN D GUMMY [Concomitant]
  8. HEMP EXTRACT [Concomitant]
  9. MIRENA [Concomitant]
     Active Substance: LEVONORGESTREL
  10. XANAX [Concomitant]
     Active Substance: ALPRAZOLAM
  11. VITAMIN D [Concomitant]
     Active Substance: CHOLECALCIFEROL
  12. RISPERIDONE 1MG TABLET RITEAID [Suspect]
     Active Substance: RISPERIDONE
     Indication: PSYCHOTIC DISORDER
     Dosage: ?          QUANTITY:1 TABLET(S);?
     Route: 048
     Dates: start: 20170612
  13. GLUCOSAMINE [Concomitant]
     Active Substance: GLUCOSAMINE

REACTIONS (7)
  - Sleep terror [None]
  - Dizziness [None]
  - Fear [None]
  - Asthenia [None]
  - Delusion [None]
  - Anxiety [None]
  - Paraesthesia [None]

NARRATIVE: CASE EVENT DATE: 20180118
